FAERS Safety Report 21137759 (Version 3)
Quarter: 2022Q3

REPORT INFORMATION
  Report Type: Spontaneous
  Country: ES (occurrence: ES)
  Receive Date: 20220727
  Receipt Date: 20220823
  Transmission Date: 20221027
  Serious: Yes (Other)
  Sender: FDA-Public Use
  Company Number: ES-Millicent Holdings Ltd.-MILL20220188

PATIENT
  Age: 50 Year
  Sex: Female

DRUGS (1)
  1. INTRAROSA [Suspect]
     Active Substance: PRASTERONE
     Indication: Vulvovaginal dryness
     Dosage: 1 DOSAGE FORM
     Route: 067
     Dates: start: 20220705, end: 20220707

REACTIONS (12)
  - Vaginal haemorrhage [Recovered/Resolved]
  - Endometrial thickening [Recovered/Resolved]
  - Thrombosis [Recovered/Resolved]
  - Vulvovaginal dryness [Recovered/Resolved]
  - Condition aggravated [Recovered/Resolved]
  - Vulvovaginal discomfort [Recovered/Resolved]
  - Contraindicated product administered [Recovered/Resolved]
  - Musculoskeletal pain [Recovered/Resolved]
  - Micturition urgency [Recovered/Resolved]
  - Pollakiuria [Recovered/Resolved]
  - Off label use [Recovered/Resolved]
  - Product prescribing issue [Unknown]

NARRATIVE: CASE EVENT DATE: 20220705
